FAERS Safety Report 6498132-X (Version None)
Quarter: 2009Q4

REPORT INFORMATION
  Report Type: 
  Country: None (occurrence: None)
  Receive Date: 20091215
  Receipt Date: 20091203
  Transmission Date: 20100525
  Serious: Yes (Other)
  Sender: FDA-Public Use
  Company Number: ES-TYCO HEALTHCARE/MALLINCKRODT-T200902260

PATIENT

DRUGS (3)
  1. OPTIRAY 350 [Suspect]
     Indication: PERCUTANEOUS CORONARY INTERVENTION
     Dosage: UNK UNK, SINGLE
  2. ACETYLCYSTEINE [Concomitant]
     Indication: PREMEDICATION
     Dosage: 1200 MG, BID
  3. SALINE                             /00075401/ [Concomitant]
     Indication: FLUID REPLACEMENT
     Dosage: 1000 ML, SINGLE
     Route: 042

REACTIONS (1)
  - NEPHROPATHY TOXIC [None]
